FAERS Safety Report 26186157 (Version 1)
Quarter: 2025Q4

REPORT INFORMATION
  Report Type: Spontaneous
  Country: EU (occurrence: EU)
  Receive Date: 20251222
  Receipt Date: 20251222
  Transmission Date: 20260118
  Serious: Yes (Disabling)
  Sender: JOHNSON AND JOHNSON
  Company Number: EU-GT-20252941

PATIENT
  Age: 38 Year
  Sex: Female

DRUGS (1)
  1. TOPIRAMATE [Suspect]
     Active Substance: TOPIRAMATE
     Indication: Migraine prophylaxis
     Route: 048

REACTIONS (2)
  - Aura [Recovering/Resolving]
  - Condition aggravated [Recovering/Resolving]
